FAERS Safety Report 23105021 (Version 1)
Quarter: 2023Q4

REPORT INFORMATION
  Report Type: Spontaneous
  Country: US (occurrence: None)
  Receive Date: 20231023
  Receipt Date: 20231023
  Transmission Date: 20240110
  Serious: Yes (Hospitalization)
  Sender: FDA-Public Use
  Company Number: None

PATIENT
  Age: 67 Year
  Sex: Male

DRUGS (2)
  1. BENZTROPINE MESYLATE [Suspect]
     Active Substance: BENZTROPINE MESYLATE
     Dates: start: 20220804
  2. LITHIUM CARBONATE [Suspect]
     Active Substance: LITHIUM CARBONATE

REACTIONS (2)
  - Therapy cessation [None]
  - Confusional state [None]

NARRATIVE: CASE EVENT DATE: 20230428
